FAERS Safety Report 6694993-X (Version None)
Quarter: 2010Q2

REPORT INFORMATION
  Report Type: 
  Country: None (occurrence: None)
  Receive Date: 20100423
  Receipt Date: 20100409
  Transmission Date: 20101027
  Serious: Yes (Other)
  Sender: FDA-Public Use
  Company Number: PHHY2010GB08241

PATIENT
  Sex: Male

DRUGS (1)
  1. CLOZARIL [Suspect]
     Indication: SCHIZOPHRENIA
     Dosage: UNK
     Dates: start: 20010430

REACTIONS (4)
  - DYSPHAGIA [None]
  - OESOPHAGEAL CARCINOMA [None]
  - TERMINAL STATE [None]
  - THROAT CANCER [None]
